FAERS Safety Report 11484702 (Version 1)
Quarter: 2015Q3

REPORT INFORMATION
  Report Type: Spontaneous
  Country: US (occurrence: None)
  Receive Date: 20150909
  Receipt Date: 20150909
  Transmission Date: 20151125
  Serious: Yes (Hospitalization)
  Sender: FDA-Public Use
  Company Number: None

PATIENT
  Age: 66 Year
  Sex: Male
  Weight: 164.82 kg

DRUGS (2)
  1. LEUPROLIDE ACETATE. [Suspect]
     Active Substance: LEUPROLIDE ACETATE
     Dates: end: 20150824
  2. CASODEX [Suspect]
     Active Substance: BICALUTAMIDE
     Dates: end: 20150905

REACTIONS (3)
  - Fatigue [None]
  - Infection [None]
  - Cellulitis [None]

NARRATIVE: CASE EVENT DATE: 20150817
